FAERS Safety Report 4367695-2 (Version None)
Quarter: 2004Q2

REPORT INFORMATION
  Report Type: 
  Country: None (occurrence: None)
  Receive Date: 20040526
  Receipt Date: 20031029
  Transmission Date: 20050107
  Serious: Yes (Hospitalization)
  Sender: FDA-Public Use
  Company Number: USA030845647

PATIENT
  Age: 63 Year
  Sex: Male
  Weight: 74 kg

DRUGS (8)
  1. ZYPREXA [Suspect]
     Indication: BIPOLAR DISORDER
     Dosage: 20 MG/AT BEDTIME
     Dates: start: 20021202, end: 20030620
  2. ATENOLOL [Concomitant]
  3. CLONAZEPAM [Concomitant]
  4. TRAZODONE HCL [Concomitant]
  5. PROTONIX [Concomitant]
  6. CHLORTHALIDONE [Concomitant]
  7. ZESTRIL [Concomitant]
  8. REGLAN [Concomitant]

REACTIONS (4)
  - BLOOD PROLACTIN INCREASED [None]
  - DIABETES MELLITUS [None]
  - GYNAECOMASTIA [None]
  - HYPERGLYCAEMIA [None]
